FAERS Safety Report 22287450 (Version 7)
Quarter: 2024Q2

REPORT INFORMATION
  Report Type: Report from Study
  Country: US (occurrence: US)
  Receive Date: 20230505
  Receipt Date: 20240403
  Transmission Date: 20240716
  Serious: Yes (Other)
  Sender: FDA-Public Use
  Company Number: US-002147023-NVSC2023US101422

PATIENT
  Sex: Male
  Weight: 108.86 kg

DRUGS (6)
  1. COSENTYX [Suspect]
     Active Substance: SECUKINUMAB
     Indication: Psoriasis
     Dosage: 150 MILLIGRAM PER MILLILITRE
     Route: 058
     Dates: start: 202105
  2. LOSARTAN [Suspect]
     Active Substance: LOSARTAN
     Indication: Psoriasis
     Dosage: 100 MG
     Route: 048
  3. CLINDAMYCIN [Suspect]
     Active Substance: CLINDAMYCIN
     Indication: Psoriasis
     Dosage: 1 PERCENT
     Route: 061
  4. HYDROCORTISONE [Suspect]
     Active Substance: HYDROCORTISONE
     Indication: Psoriasis
     Dosage: UNK
     Route: 065
  5. ECONAZOLE [Suspect]
     Active Substance: ECONAZOLE
     Indication: Psoriasis
     Dosage: 1 PERCENT
     Route: 061
  6. ALCOHOL [Suspect]
     Active Substance: ALCOHOL
     Indication: Psoriasis
     Dosage: UNK
     Route: 065

REACTIONS (16)
  - Condition aggravated [Not Recovered/Not Resolved]
  - Nodule [Unknown]
  - Rash [Unknown]
  - Rash pruritic [Unknown]
  - Tinea cruris [Recovered/Resolved]
  - Folliculitis [Unknown]
  - Skin irritation [Unknown]
  - Rash erythematous [Unknown]
  - Skin plaque [Unknown]
  - Pain of skin [Unknown]
  - Psoriasis [Unknown]
  - Skin exfoliation [Unknown]
  - Pruritus [Not Recovered/Not Resolved]
  - Product use in unapproved indication [Unknown]
  - Product storage error [Unknown]
  - Drug ineffective [Unknown]
